FAERS Safety Report 8511467 (Version 4)
Quarter: 2012Q4

REPORT INFORMATION
  Report Type: 
  Country: US (occurrence: US)
  Receive Date: 20120413
  Receipt Date: 20120924
  Transmission Date: 20130627
  Serious: Yes (Hospitalization)
  Sender: FDA-Public Use
  Company Number: US-ASTRAZENECA-2011SE27524

PATIENT
  Age: 58 Year
  Sex: Female

DRUGS (4)
  1. NEXIUM [Suspect]
     Route: 048
     Dates: end: 20110515
  2. NEXIUM [Suspect]
     Route: 048
  3. TOPROL XL [Suspect]
     Route: 048
     Dates: end: 20110515
  4. TOPROL XL [Suspect]
     Route: 048

REACTIONS (13)
  - Pyrexia [Unknown]
  - Musculoskeletal stiffness [Unknown]
  - Stress [Unknown]
  - Urinary tract infection [Unknown]
  - Gout [Unknown]
  - Neuropathy peripheral [Unknown]
  - Aphagia [Unknown]
  - Glaucoma [Unknown]
  - Malaise [Unknown]
  - Headache [Unknown]
  - Retching [Unknown]
  - Intentional drug misuse [Unknown]
  - Drug dose omission [Unknown]
